FAERS Safety Report 9735869 (Version 1)
Quarter: 2013Q4

REPORT INFORMATION
  Report Type: Spontaneous
  Country: US (occurrence: US)
  Receive Date: 20131206
  Receipt Date: 20131206
  Transmission Date: 20140711
  Serious: No
  Sender: FDA-Public Use
  Company Number: US-GILEAD-2009-0024189

PATIENT
  Sex: Female

DRUGS (13)
  1. LETAIRIS [Suspect]
     Indication: PULMONARY ARTERIAL HYPERTENSION
     Route: 048
     Dates: start: 20090611
  2. LASIX [Concomitant]
  3. LIPITOR [Concomitant]
  4. NIFEDIPINE [Concomitant]
  5. ISOSORBIDE [Concomitant]
  6. PLAVIX [Concomitant]
  7. SYNTHROID [Concomitant]
  8. ENALAPRIL [Concomitant]
  9. METFORMIN [Concomitant]
  10. GLIPIZIDE [Concomitant]
  11. GLUCOPHAGE [Concomitant]
  12. FLUOXETINE [Concomitant]
  13. NEXIUM [Concomitant]

REACTIONS (1)
  - Anaemia [Recovering/Resolving]
